FAERS Safety Report 6424467-2 (Version None)
Quarter: 2009Q4

REPORT INFORMATION
  Report Type: 
  Country: None (occurrence: None)
  Receive Date: 20091103
  Receipt Date: 20091021
  Transmission Date: 20100525
  Serious: Yes (Other)
  Sender: FDA-Public Use
  Company Number: US-BRACCO-003623

PATIENT

DRUGS (5)
  1. PROHANCE [Suspect]
     Indication: DIAGNOSTIC PROCEDURE
     Dosage: 0.4 MMOL/KG
     Route: 013
     Dates: start: 20030508, end: 20030508
  2. OMNISCAN [Suspect]
     Indication: DIAGNOSTIC PROCEDURE
     Dosage: 0.4 MMOL/KG
     Route: 042
     Dates: start: 20030505, end: 20030505
  3. OMNISCAN [Suspect]
     Dosage: 0.4 MMOL/KG
     Route: 013
     Dates: start: 20030401, end: 20030401
  4. OMNISCAN [Suspect]
     Dosage: 0.3 MMOL/KG
     Route: 013
     Dates: start: 20030312, end: 20030312
  5. OMNISCAN [Suspect]
     Dosage: 04. MMOL/KG
     Route: 042
     Dates: start: 20030331, end: 20030331

REACTIONS (1)
  - NEPHROGENIC SYSTEMIC FIBROSIS [None]
